FAERS Safety Report 23954209 (Version 3)
Quarter: 2024Q2

REPORT INFORMATION
  Report Type: Spontaneous
  Country: TR (occurrence: TR)
  Receive Date: 20240609
  Receipt Date: 20240618
  Transmission Date: 20240716
  Serious: Yes (Other)
  Sender: FDA-Public Use
  Company Number: TR-002147023-NVSC2024TR120295

PATIENT
  Age: 44 Year
  Sex: Male

DRUGS (2)
  1. TEGRETOL XR [Suspect]
     Active Substance: CARBAMAZEPINE
     Indication: Epilepsy
     Dosage: 400 MG, SINCE 19 YEARS OLD
     Route: 048
  2. TEGRETOL XR [Suspect]
     Active Substance: CARBAMAZEPINE
     Dosage: 400 MG
     Route: 048

REACTIONS (7)
  - Seizure [Unknown]
  - Syncope [Unknown]
  - Liver disorder [Unknown]
  - Counterfeit product administered [Unknown]
  - Renal disorder [Unknown]
  - Abnormal dreams [Unknown]
  - Dizziness [Unknown]
